FAERS Safety Report 12613397 (Version 3)
Quarter: 2016Q3

REPORT INFORMATION
  Report Type: Spontaneous
  Country: GB (occurrence: GB)
  Receive Date: 20160802
  Receipt Date: 20160926
  Transmission Date: 20161109
  Serious: Yes (Other)
  Sender: FDA-Public Use
  Company Number: GB-ACCORD-042165

PATIENT
  Age: 69 Year
  Sex: Female

DRUGS (8)
  1. EPIRUBICIN [Suspect]
     Active Substance: EPIRUBICIN
     Indication: BREAST CANCER
     Dosage: 126 MG, CYCLE 1/6, BY A PAXMAN SCALP COOLER
     Route: 042
     Dates: start: 20160608
  2. CYCLOPHOSPHAMIDE SANDOZ [Suspect]
     Active Substance: CYCLOPHOSPHAMIDE
     Indication: PRODUCT USED FOR UNKNOWN INDICATION
     Dosage: 0.9 MG, CYCLE 1/6, BY A PAXMAN SCALP COOLER
     Route: 042
     Dates: start: 20160608
  3. FLUOROURACIL. [Suspect]
     Active Substance: FLUOROURACIL
     Indication: BREAST CANCER
     Dosage: 1008 MG, CYCLE 1/6, BY A PAXMAN SCALP COOLER
     Route: 042
     Dates: start: 20160608
  4. EMEND [Suspect]
     Active Substance: APREPITANT
     Indication: PRODUCT USED FOR UNKNOWN INDICATION
     Dosage: 125 MG
     Route: 048
  5. METOCLOPRAMIDE. [Suspect]
     Active Substance: METOCLOPRAMIDE
     Indication: PRODUCT USED FOR UNKNOWN INDICATION
  6. ONDANSETRON ACCORD [Suspect]
     Active Substance: ONDANSETRON
     Indication: PRODUCT USED FOR UNKNOWN INDICATION
     Route: 042
  7. DEXAMETHASONE. [Suspect]
     Active Substance: DEXAMETHASONE
     Indication: PRODUCT USED FOR UNKNOWN INDICATION
     Route: 042
  8. NEULASTA [Suspect]
     Active Substance: PEGFILGRASTIM
     Indication: BREAST CANCER
     Dosage: 6 MG, CYCLE 1/6, BY A PAXMAN SCALP COOLER
     Route: 058
     Dates: start: 20160608

REACTIONS (18)
  - Diarrhoea [Unknown]
  - Intercepted medication error [Unknown]
  - Condition aggravated [Unknown]
  - Odynophagia [Unknown]
  - Nausea [Unknown]
  - Lethargy [Unknown]
  - Fatigue [Unknown]
  - Hypophagia [Unknown]
  - Glossodynia [Unknown]
  - Alopecia [Unknown]
  - Eating disorder [Unknown]
  - Headache [Unknown]
  - Ear pain [Unknown]
  - Feeling abnormal [Unknown]
  - Pharyngeal erythema [Unknown]
  - Oral pain [Unknown]
  - Vomiting [Unknown]
  - Lower respiratory tract infection [Unknown]

NARRATIVE: CASE EVENT DATE: 201606
